FAERS Safety Report 8025616-5 (Version None)
Quarter: 2012Q1

REPORT INFORMATION
  Report Type: 
  Country: None (occurrence: None)
  Receive Date: 20120105
  Receipt Date: 20111227
  Transmission Date: 20120608
  Serious: Yes (Hospitalization, Other)
  Sender: FDA-Public Use
  Company Number: US-ELI_LILLY_AND_COMPANY-US200912004441

PATIENT
  Sex: Male

DRUGS (19)
  1. MYSOLINE [Concomitant]
  2. MULTI-VITAMIN [Concomitant]
  3. SENNA SPP. [Concomitant]
  4. FORTEO [Suspect]
     Indication: OSTEOPOROSIS
     Dosage: 20 UG, QD
     Route: 058
     Dates: start: 20091209
  5. OXYBUTYNIN CHLORIDE [Concomitant]
  6. CALCIUM PLUS D3 [Concomitant]
  7. ASPIRIN [Concomitant]
     Dosage: UNK, UNKNOWN
  8. CRESTOR [Concomitant]
  9. FORTEO [Suspect]
     Dosage: 20 UG, QD
     Route: 058
  10. FORTEO [Suspect]
     Dosage: 20 UG, QD
     Route: 058
  11. VALSARTAN [Concomitant]
  12. PRILOSEC [Concomitant]
  13. LOVAZA [Concomitant]
  14. VITAMIN D [Concomitant]
  15. FORTEO [Suspect]
     Dosage: 20 UG, QD
     Route: 058
  16. CARVEDIL [Concomitant]
  17. ZETIA [Concomitant]
  18. TYLENOL (CAPLET) [Concomitant]
  19. XALATAN [Concomitant]

REACTIONS (20)
  - FUNCTIONAL GASTROINTESTINAL DISORDER [None]
  - DIARRHOEA [None]
  - URINARY TRACT DISORDER [None]
  - CALCULUS URINARY [None]
  - MYALGIA [None]
  - PAIN IN EXTREMITY [None]
  - OVERDOSE [None]
  - INTENTIONAL OVERDOSE [None]
  - INJECTION SITE HAEMATOMA [None]
  - INJECTION SITE ERYTHEMA [None]
  - BLADDER DYSFUNCTION [None]
  - MUSCLE DISORDER [None]
  - ARTHRITIS [None]
  - ANXIETY [None]
  - VIRAL INFECTION [None]
  - HICCUPS [None]
  - URINARY TRACT OBSTRUCTION [None]
  - MOVEMENT DISORDER [None]
  - INJECTION SITE PAIN [None]
  - URINE FLOW DECREASED [None]
